FAERS Safety Report 8274274-3 (Version None)
Quarter: 2012Q2

REPORT INFORMATION
  Report Type: 
  Country: None (occurrence: None)
  Receive Date: 20120411
  Receipt Date: 20120411
  Transmission Date: 20120825
  Serious: Yes (Other)
  Sender: FDA-Public Use
  Company Number: None

PATIENT
  Age: 86 Year
  Sex: Female

DRUGS (2)
  1. AVASTIN [Concomitant]
  2. AVASTIN [Suspect]
     Indication: AGE-RELATED MACULAR DEGENERATION
     Dosage: 1 -1.25 MG-
     Route: 031
     Dates: start: 20090903, end: 20120402

REACTIONS (1)
  - ENDOPHTHALMITIS [None]
